FAERS Safety Report 23891153 (Version 4)
Quarter: 2025Q1

REPORT INFORMATION
  Report Type: Report from Study
  Country: JP (occurrence: JP)
  Receive Date: 20240523
  Receipt Date: 20250218
  Transmission Date: 20250409
  Serious: Yes (Other)
  Sender: BIOMARIN
  Company Number: JP-BIOMARINAP-JP-2024-158082

PATIENT

DRUGS (3)
  1. VOXZOGO [Suspect]
     Active Substance: VOSORITIDE
     Indication: Osteochondrodysplasia
     Dosage: 0.50 UNK, QD
     Route: 058
     Dates: start: 20230119
  2. ADCIRCA [Concomitant]
     Active Substance: TADALAFIL
     Indication: Adverse event
  3. ENALAPRIL [Concomitant]
     Active Substance: ENALAPRIL
     Indication: Adverse event

REACTIONS (1)
  - Oxygen saturation decreased [Recovered/Resolved]

NARRATIVE: CASE EVENT DATE: 20231127
